FAERS Safety Report 8347510-2 (Version None)
Quarter: 2012Q2

REPORT INFORMATION
  Report Type: 
  Country: None (occurrence: None)
  Receive Date: 20120509
  Receipt Date: 20120501
  Transmission Date: 20120825
  Serious: Yes (Other)
  Sender: FDA-Public Use
  Company Number: US-ABBOTT-12P-163-0931531-00

PATIENT
  Sex: Male
  Weight: 92.162 kg

DRUGS (12)
  1. LIPITOR [Concomitant]
     Indication: VITAMIN D DECREASED
     Dosage: AT BEDTIME
     Route: 048
     Dates: start: 20120301
  2. TRILIPIX [Concomitant]
     Indication: VITAMIN D DECREASED
     Route: 048
  3. LOVAZA [Concomitant]
     Indication: VITAMIN D DECREASED
     Route: 048
     Dates: start: 20120301
  4. NIASPAN [Suspect]
     Indication: LOW DENSITY LIPOPROTEIN INCREASED
     Dosage: TITRATE DOWN TO 500MG BID
     Route: 048
  5. ASPIRIN [Concomitant]
     Indication: VITAMIN D DECREASED
     Dosage: AT BEDTIME
     Route: 048
  6. LOSARTAN POTASSIUM [Concomitant]
     Indication: VITAMIN D DECREASED
     Route: 048
  7. NIASPAN [Suspect]
     Indication: HIGH DENSITY LIPOPROTEIN DECREASED
     Dosage: 500MG TWO TABS BID
     Route: 048
     Dates: start: 20060101
  8. AMLODIPINE [Concomitant]
     Indication: VITAMIN D DECREASED
     Route: 048
     Dates: start: 20120301
  9. PLAVIX [Suspect]
     Indication: PRODUCT USED FOR UNKNOWN INDICATION
     Route: 048
  10. CARVEDILOL [Concomitant]
     Indication: VITAMIN D DECREASED
     Route: 048
  11. TAMSULOSIN HCL [Concomitant]
     Indication: VITAMIN D DECREASED
     Route: 048
     Dates: start: 20120301
  12. NIASPAN [Suspect]
     Indication: BLOOD TRIGLYCERIDES INCREASED
     Dosage: TITRATE DOWN TO 500MG QHS
     Route: 048

REACTIONS (4)
  - MEMORY IMPAIRMENT [None]
  - CEREBROVASCULAR ACCIDENT [None]
  - VITAMIN D DECREASED [None]
  - FLUSHING [None]
